FAERS Safety Report 23219826 (Version 2)
Quarter: 2024Q3

REPORT INFORMATION
  Report Type: Spontaneous
  Country: US (occurrence: US)
  Receive Date: 20231122
  Receipt Date: 20240822
  Transmission Date: 20241016
  Serious: No
  Sender: AVADEL CNS PHARMA
  Company Number: US-AVADEL CNS PHARMACEUTICALS, LLC-2023AVA00092

PATIENT
  Sex: Female
  Weight: 59.41 kg

DRUGS (13)
  1. LUMRYZ [Suspect]
     Active Substance: SODIUM OXYBATE
     Indication: Narcolepsy
     Dosage: MIX AND TAKE THE CONTENTS OF 1 PACKET (4.5 G) EVERY DAY FOR 7 DAYS
     Route: 048
     Dates: start: 20230823, end: 20230829
  2. LUMRYZ [Suspect]
     Active Substance: SODIUM OXYBATE
     Indication: Narcolepsy
     Dosage: MIX AND TAKE THE CONTENTS OF 1 PACKET (6 G) EVERY DAY
     Route: 048
     Dates: start: 20230830
  3. TYLENOL ARTHRITIS PAIN [Concomitant]
     Active Substance: ACETAMINOPHEN
     Dosage: TYLENOL ARTHRITIS 650 MG TABLET SA
  4. DEXEDRINE [Concomitant]
     Active Substance: DEXTROAMPHETAMINE SULFATE
     Dosage: DEXEDRINE 10 MG CAPSULE SA
  5. RIZATRIPTAN [Concomitant]
     Active Substance: RIZATRIPTAN
     Dosage: RIZATRIPTAN 10 MG TAB RAPDIS
  6. ONDANSETRON [Concomitant]
     Active Substance: ONDANSETRON
     Dosage: ONDANSETRON ODT 8 MG TAB RAPDIS
  7. DULOXETINE HYDROCHLORIDE [Concomitant]
     Active Substance: DULOXETINE HYDROCHLORIDE
     Dosage: DULOXETINE HCL 60 MG CAPSULE DR
  8. VALTREX [Concomitant]
     Active Substance: VALACYCLOVIR HYDROCHLORIDE
  9. DIFLUCAN [Concomitant]
     Active Substance: FLUCONAZOLE
  10. CHOLECALCIFEROL [Concomitant]
     Active Substance: CHOLECALCIFEROL
     Dosage: UNK
  11. CALCIUM [Concomitant]
     Active Substance: CALCIUM
  12. ACTONEL [Concomitant]
     Active Substance: RISEDRONATE SODIUM
  13. DAILY VITE [ASCORBIC ACID;CALCIUM PANTOTHENATE;COLECALCIFEROL;CYANOCOB [Concomitant]

REACTIONS (6)
  - Insomnia [Not Recovered/Not Resolved]
  - Middle insomnia [Not Recovered/Not Resolved]
  - Fatigue [Not Recovered/Not Resolved]
  - Initial insomnia [Not Recovered/Not Resolved]
  - Exposure to toxic agent [Unknown]
  - Drug ineffective [Recovered/Resolved]

NARRATIVE: CASE EVENT DATE: 20230101
